FAERS Safety Report 11001622 (Version 3)
Quarter: 2016Q3

REPORT INFORMATION
  Report Type: Spontaneous
  Country: US (occurrence: US)
  Receive Date: 20150408
  Receipt Date: 20160720
  Transmission Date: 20161109
  Serious: No
  Sender: FDA-Public Use
  Company Number: US-PFIZER INC-2015120236

PATIENT
  Sex: Female

DRUGS (10)
  1. BACTRIM [Suspect]
     Active Substance: SULFAMETHOXAZOLE\TRIMETHOPRIM
     Dosage: UNK
  2. ASPIRIN. [Suspect]
     Active Substance: ASPIRIN
     Dosage: UNK
  3. IBUPROFEN. [Suspect]
     Active Substance: IBUPROFEN
     Dosage: UNK
  4. CLEOCIN [Suspect]
     Active Substance: CLINDAMYCIN PHOSPHATE
  5. TETRACYCLINE HCL [Suspect]
     Active Substance: TETRACYCLINE HYDROCHLORIDE
     Dosage: UNK
  6. AMOXICILLIN. [Suspect]
     Active Substance: AMOXICILLIN
     Dosage: UNK
  7. PROLIA [Suspect]
     Active Substance: DENOSUMAB
     Dosage: UNK
  8. ENBREL [Suspect]
     Active Substance: ETANERCEPT
     Dosage: UNK
  9. ISOVUE [Suspect]
     Active Substance: IOPAMIDOL
     Dosage: UNK
  10. REMICADE [Suspect]
     Active Substance: INFLIXIMAB
     Dosage: UNK

REACTIONS (1)
  - Drug hypersensitivity [Unknown]
